FAERS Safety Report 5403620-0 (Version None)
Quarter: 2007Q3

REPORT INFORMATION
  Report Type: 
  Country: None (occurrence: None)
  Receive Date: 20070802
  Receipt Date: 20070723
  Transmission Date: 20080115
  Serious: No
  Sender: FDA-Public Use
  Company Number: PHEH2007US05103

PATIENT
  Age: 43 Year
  Sex: Female
  Weight: 117.91 kg

DRUGS (5)
  1. GLEEVEC [Suspect]
     Indication: CHRONIC MYELOID LEUKAEMIA
     Dosage: 700 MG, QD
     Route: 048
     Dates: start: 20040205
  2. PREVACID [Concomitant]
     Indication: GASTROOESOPHAGEAL REFLUX DISEASE
     Dosage: 30 MG, QD
     Route: 048
     Dates: start: 20040116
  3. EFFEXOR [Concomitant]
     Indication: ANXIETY
     Dosage: 37.5 MG, QD
     Route: 048
     Dates: start: 20040116
  4. GLUCOPHAGE [Concomitant]
     Indication: DIABETES MELLITUS
     Dosage: 100 MG, QD
     Route: 048
     Dates: start: 20040116
  5. NEURONTIN [Concomitant]
     Indication: NEUROPATHY
     Dosage: 100 MG, TID
     Route: 048
     Dates: start: 20040116

REACTIONS (1)
  - ANXIETY [None]
